FAERS Safety Report 21868205 (Version 1)
Quarter: 2023Q1

REPORT INFORMATION
  Report Type: Report from Study
  Country: US (occurrence: US)
  Receive Date: 20230116
  Receipt Date: 20230116
  Transmission Date: 20230418
  Serious: Yes (Other)
  Sender: FDA-Public Use
  Company Number: US-ABBVIE-4269138

PATIENT
  Sex: Female

DRUGS (1)
  1. RINVOQ [Suspect]
     Active Substance: UPADACITINIB
     Indication: Rheumatoid arthritis
     Route: 048
     Dates: start: 20210701

REACTIONS (4)
  - Ovarian neoplasm [Unknown]
  - Ovarian oedema [Unknown]
  - Dysuria [Unknown]
  - Haemangioma [Unknown]

NARRATIVE: CASE EVENT DATE: 20220101
